FAERS Safety Report 7613752-4 (Version None)
Quarter: 2011Q3

REPORT INFORMATION
  Report Type: 
  Country: None (occurrence: None)
  Receive Date: 20110708
  Receipt Date: 20110701
  Transmission Date: 20111222
  Serious: Yes (Hospitalization)
  Sender: FDA-Public Use
  Company Number: 2011148657

PATIENT
  Age: 56 Year
  Sex: Male

DRUGS (5)
  1. CYCLOPHOSPHAMIDE [Concomitant]
  2. DEXAMETHASONE [Concomitant]
  3. REVLIMID [Suspect]
     Indication: MULTIPLE MYELOMA
     Dosage: 25 MG, 1X/DAY,ORAL
     Route: 048
  4. FRAGMIN [Suspect]
     Indication: DEEP VEIN THROMBOSIS
     Dosage: 18000 IU, SUBCUTANEOUS
     Route: 058
  5. FRAGMIN [Suspect]
     Indication: PULMONARY EMBOLISM
     Dosage: 18000 IU, SUBCUTANEOUS
     Route: 058

REACTIONS (2)
  - HAEMATURIA [None]
  - RENAL IMPAIRMENT [None]
